FAERS Safety Report 6636725-7 (Version None)
Quarter: 2010Q1

REPORT INFORMATION
  Report Type: 
  Country: None (occurrence: None)
  Receive Date: 20100316
  Receipt Date: 20100309
  Transmission Date: 20100710
  Serious: Yes (Hospitalization)
  Sender: FDA-Public Use
  Company Number: B0639083A

PATIENT
  Age: 68 Year
  Sex: Female

DRUGS (3)
  1. AMOXICILLIN AND CLAVULANATE POTASSIUM [Suspect]
     Indication: BRONCHITIS
     Dosage: 500MG THREE TIMES PER DAY
     Route: 048
     Dates: start: 20091105, end: 20091108
  2. MEDROL [Suspect]
     Indication: BRONCHITIS
     Dosage: 3UNIT PER DAY
     Route: 048
     Dates: start: 20091105, end: 20091108
  3. CELESTAMINE TAB [Suspect]
     Indication: BRONCHITIS
     Dosage: 1UNIT PER DAY
     Route: 048
     Dates: start: 20091105, end: 20091113

REACTIONS (5)
  - CONDITION AGGRAVATED [None]
  - PRURITUS [None]
  - RASH MACULO-PAPULAR [None]
  - SKIN DISCOLOURATION [None]
  - SWELLING FACE [None]
